FAERS Safety Report 5584006-5 (Version None)
Quarter: 2008Q1

REPORT INFORMATION
  Report Type: 
  Country: None (occurrence: None)
  Receive Date: 20080104
  Receipt Date: 20080104
  Transmission Date: 20080703
  Serious: Yes (Other)
  Sender: FDA-Public Use
  Company Number: None

PATIENT
  Age: 27 Year
  Sex: Female
  Weight: 47.6277 kg

DRUGS (1)
  1. ZICAM NO-DRIP LIQUID NASAL GEL EXTREME CONGESTION RELIEF ZICAM [Suspect]
     Indication: NASAL CONGESTION
     Dosage: OXYMETAZOLINE HCL 0.05% Q12 NASAL
     Route: 045
     Dates: start: 20070102, end: 20070103

REACTIONS (2)
  - MEDICATION ERROR [None]
  - PHARMACEUTICAL PRODUCT COMPLAINT [None]
